FAERS Safety Report 25590939 (Version 2)
Quarter: 2025Q3

REPORT INFORMATION
  Report Type: Spontaneous
  Country: EU (occurrence: EU)
  Receive Date: 20250722
  Receipt Date: 20250801
  Transmission Date: 20251021
  Serious: Yes (Other)
  Sender: TEVA
  Company Number: EU-TEVA-VS-3353333

PATIENT
  Age: 62 Year
  Sex: Male

DRUGS (4)
  1. FENTANYL [Interacting]
     Active Substance: FENTANYL
     Indication: Anaesthesia
     Route: 042
  2. IMIPRAMINE [Interacting]
     Active Substance: IMIPRAMINE
     Indication: Neuralgia
     Route: 065
  3. REMIFENTANIL [Interacting]
     Active Substance: REMIFENTANIL
     Indication: Anaesthesia
     Route: 042
  4. PROPOFOL [Interacting]
     Active Substance: PROPOFOL
     Indication: Anaesthesia
     Route: 042

REACTIONS (2)
  - Hypotension [Unknown]
  - Drug interaction [Unknown]
